FAERS Safety Report 8807959 (Version 2)
Quarter: 2012Q4

REPORT INFORMATION
  Report Type: 
  Country: JP (occurrence: JP)
  Receive Date: 20120925
  Receipt Date: 20121120
  Transmission Date: 20130627
  Serious: Yes (Other)
  Sender: FDA-Public Use
  Company Number: JP-PFIZER INC-2012235166

PATIENT
  Age: 61 Year
  Sex: Male

DRUGS (5)
  1. LYRICA [Suspect]
     Indication: NUMBNESS
     Dosage: 25 mg, daily
     Route: 048
     Dates: start: 20120820, end: 20120825
  2. LYRICA [Suspect]
     Indication: PAIN
  3. TERNELIN [Suspect]
     Indication: SPINAL COLUMN STENOSIS
     Dosage: UNK
  4. NEUROTROPIN [Suspect]
     Indication: SPINAL COLUMN STENOSIS
     Dosage: UNK
  5. LOXONIN [Concomitant]
     Dosage: UNK

REACTIONS (6)
  - Fall [Unknown]
  - Gait disturbance [Unknown]
  - Dizziness [Unknown]
  - Contusion [Unknown]
  - Restless legs syndrome [Unknown]
  - Paraesthesia [Unknown]
